FAERS Safety Report 24379464 (Version 1)
Quarter: 2024Q3

REPORT INFORMATION
  Report Type: Spontaneous
  Country: US (occurrence: US)
  Receive Date: 20240930
  Receipt Date: 20240930
  Transmission Date: 20241016
  Serious: No
  Sender: ELI LILLY AND CO
  Company Number: US-ELI_LILLY_AND_COMPANY-US202409014356

PATIENT
  Age: 46 Year
  Sex: Female

DRUGS (1)
  1. EMGALITY [Suspect]
     Active Substance: GALCANEZUMAB-GNLM
     Indication: Intracranial pressure increased
     Dosage: 120 MG, UNKNOWN
     Route: 065
     Dates: start: 2023

REACTIONS (3)
  - Off label use [Unknown]
  - Product storage error [Unknown]
  - Migraine [Unknown]

NARRATIVE: CASE EVENT DATE: 20230101
